FAERS Safety Report 6368968-4 (Version None)
Quarter: 2009Q3

REPORT INFORMATION
  Report Type: 
  Country: None (occurrence: None)
  Receive Date: 20090918
  Receipt Date: 20090918
  Transmission Date: 20100115
  Serious: No
  Sender: FDA-Public Use
  Company Number: None

PATIENT
  Age: 70 Year
  Sex: Female
  Weight: 54.4316 kg

DRUGS (2)
  1. LISINOPRIL [Suspect]
     Indication: HYPERTENSION
     Dosage: 2.5 MG 1- 2X ORAL
     Route: 048
     Dates: start: 20080601, end: 20090901
  2. LISINOPRIL [Suspect]
     Dosage: 5.0 MG 1 -2X ORAL
     Route: 048

REACTIONS (3)
  - BLOOD PRESSURE INADEQUATELY CONTROLLED [None]
  - MUSCLE TIGHTNESS [None]
  - RESTLESSNESS [None]
